FAERS Safety Report 7897639-8 (Version None)
Quarter: 2011Q4

REPORT INFORMATION
  Report Type: 
  Country: None (occurrence: None)
  Receive Date: 20111028
  Receipt Date: 20110317
  Transmission Date: 20120403
  Serious: Yes (Other)
  Sender: FDA-Public Use
  Company Number: PHHY2011US21970

PATIENT
  Age: 33 Year
  Sex: Female

DRUGS (4)
  1. LAMICTAL [Concomitant]
  2. NORVASC [Concomitant]
  3. TRILEPTAL [Suspect]
     Dosage: 150 MG IN MORNING AND 300 MG AT NIGHT; 300 MG IN MORNING ND 600 MG AT NIGHT
  4. SYNTHROID [Concomitant]

REACTIONS (4)
  - CONFUSIONAL STATE [None]
  - BLOOD SODIUM DECREASED [None]
  - NAUSEA [None]
  - DIZZINESS [None]
